FAERS Safety Report 24869526 (Version 1)
Quarter: 2025Q1

REPORT INFORMATION
  Report Type: Spontaneous
  Country: FR (occurrence: FR)
  Receive Date: 20250121
  Receipt Date: 20250121
  Transmission Date: 20250408
  Serious: Yes (Death)
  Sender: PFIZER
  Company Number: None

PATIENT
  Age: 68 Year
  Sex: Female
  Weight: 46 kg

DRUGS (7)
  1. PIPERACILLIN SODIUM\TAZOBACTAM SODIUM [Suspect]
     Active Substance: PIPERACILLIN SODIUM\TAZOBACTAM SODIUM
     Indication: Sepsis
     Dosage: 16 G, 1X/DAY
     Route: 042
     Dates: start: 20240718, end: 20240720
  2. ADAGRASIB [Suspect]
     Active Substance: ADAGRASIB
     Indication: Non-small cell lung cancer stage IV
     Dosage: 600 MG, 2X/DAY (FREQ:12 H)
     Route: 048
     Dates: start: 20240605, end: 20240720
  3. PREDNISONE [Concomitant]
     Active Substance: PREDNISONE
     Dosage: 60 MG, 1X/DAY
     Route: 048
  4. PANTOPRAZOLE [Concomitant]
     Active Substance: PANTOPRAZOLE
     Indication: Gastrooesophageal reflux disease
     Dosage: 20 MG, 1X/DAY
     Route: 048
  5. BACTRIM [Concomitant]
     Active Substance: SULFAMETHOXAZOLE\TRIMETHOPRIM
     Dosage: 800 MG, ALTERNATE DAY
     Route: 048
  6. FUROSEMIDE [Concomitant]
     Active Substance: FUROSEMIDE
     Route: 048
  7. MORPHINE [Concomitant]
     Active Substance: MORPHINE
     Indication: Cancer pain
     Dosage: 20 MG, 2X/DAY (FREQ:12 H)
     Route: 048

REACTIONS (2)
  - Status epilepticus [Fatal]
  - Off label use [Unknown]

NARRATIVE: CASE EVENT DATE: 20240718
